FAERS Safety Report 8762729 (Version 2)
Quarter: 2012Q4

REPORT INFORMATION
  Report Type: 
  Country: US (occurrence: US)
  Receive Date: 20120831
  Receipt Date: 20121211
  Transmission Date: 20130627
  Serious: Yes (Other)
  Sender: FDA-Public Use
  Company Number: US-ROCHE-1065330

PATIENT
  Age: 17 Year
  Sex: Male
  Weight: 48.58 kg

DRUGS (2)
  1. ACCUTANE [Suspect]
     Indication: ACNE
     Dosage: 40 mg/10 mg
     Route: 065
     Dates: start: 19970716, end: 19971231
  2. ACCUTANE [Suspect]
     Route: 065
     Dates: start: 199802, end: 199807

REACTIONS (11)
  - Colitis ulcerative [Unknown]
  - Depression [Unknown]
  - Pouchitis [Unknown]
  - Myalgia [Unknown]
  - Emotional distress [Not Recovered/Not Resolved]
  - Inflammatory bowel disease [Unknown]
  - Intestinal obstruction [Unknown]
  - Anal fissure [Unknown]
  - Lip dry [Unknown]
  - Dry skin [Unknown]
  - Anosmia [Unknown]
